FAERS Safety Report 7931618-7 (Version None)
Quarter: 2011Q4

REPORT INFORMATION
  Report Type: 
  Country: None (occurrence: None)
  Receive Date: 20111121
  Receipt Date: 20111108
  Transmission Date: 20120403
  Serious: Yes (Hospitalization, Other)
  Sender: FDA-Public Use
  Company Number: PHHY2011JP099951

PATIENT
  Sex: Male
  Weight: 50 kg

DRUGS (13)
  1. NORVASC [Concomitant]
     Indication: HYPERTENSION
     Dosage: 5 MG, UNK
     Route: 048
     Dates: start: 20100208, end: 20100409
  2. LANTUS [Concomitant]
     Dosage: 24 IU, UNK
     Dates: start: 20070710, end: 20100409
  3. LEVEMIR [Concomitant]
     Dosage: 15 IU, UNK
     Dates: start: 20090120, end: 20100409
  4. ISOSORBIDE MONONITRATE [Concomitant]
     Dosage: 40 MG, UNK
     Route: 048
     Dates: start: 20040510, end: 20100409
  5. BUFFERIN [Concomitant]
     Dosage: 81 MG, UNK
     Route: 048
     Dates: start: 20040510, end: 20100409
  6. MIGLITOL [Concomitant]
     Dosage: 225 MG, UNK
     Route: 048
     Dates: start: 20070214, end: 20100409
  7. LASIX [Concomitant]
     Indication: HYPERTENSION
     Dosage: 20 MG, UNK
     Route: 048
     Dates: start: 20040510, end: 20100409
  8. PENFILL N [Concomitant]
     Dosage: 18 IU, UNK
     Dates: start: 20070424, end: 20090119
  9. AMARYL [Concomitant]
     Dosage: 0.5 MG, UNK
     Route: 048
     Dates: start: 20081216, end: 20100409
  10. GLUFAST [Concomitant]
     Dosage: 60 MG, UNK
     Route: 048
     Dates: start: 20070215, end: 20081215
  11. SIGMART [Concomitant]
     Dosage: 15 MG, UNK
     Route: 048
     Dates: start: 20040510, end: 20100409
  12. ACTOS [Concomitant]
     Dosage: 15 MG, UNK
     Route: 048
     Dates: start: 20081216, end: 20100409
  13. VALSARTAN [Suspect]
     Indication: HYPERTENSION
     Dosage: 40 MG, QD
     Route: 048
     Dates: start: 20080208, end: 20100409

REACTIONS (3)
  - DIABETIC GANGRENE [None]
  - BLOOD GLUCOSE INCREASED [None]
  - HEART RATE INCREASED [None]
